FAERS Safety Report 26074905 (Version 1)
Quarter: 2025Q4

REPORT INFORMATION
  Report Type: Spontaneous
  Country: US (occurrence: None)
  Receive Date: 20251120
  Receipt Date: 20251120
  Transmission Date: 20260117
  Serious: Yes (Hospitalization)
  Sender: FDA-CTU
  Company Number: None

PATIENT
  Age: 22 Year
  Sex: Female
  Weight: 60.75 kg

DRUGS (2)
  1. IRON SUCROSE [Suspect]
     Active Substance: IRON SUCROSE
     Indication: Anaemia of pregnancy
     Dosage: OTHER FREQUENCY : ONCE;?
     Route: 042
     Dates: start: 20251114, end: 20251114
  2. IRON SUCROSE [Suspect]
     Active Substance: IRON SUCROSE
     Indication: Anaemia of pregnancy
     Dosage: OTHER FREQUENCY : ONCE;?
     Route: 042
     Dates: start: 20251114, end: 20251114

REACTIONS (9)
  - Infusion related reaction [None]
  - Vomiting [None]
  - Burning sensation [None]
  - Peripheral swelling [None]
  - Peripheral swelling [None]
  - Foetal heart rate deceleration abnormality [None]
  - Blood pressure decreased [None]
  - Induced labour [None]
  - Exposure during pregnancy [None]

NARRATIVE: CASE EVENT DATE: 20251114
